FAERS Safety Report 10216514 (Version 5)
Quarter: 2014Q4

REPORT INFORMATION
  Report Type: Spontaneous
  Country: US (occurrence: US)
  Receive Date: 20140604
  Receipt Date: 20141007
  Transmission Date: 20150528
  Serious: No
  Sender: FDA-Public Use
  Company Number: US-PFIZER INC-2014150508

PATIENT
  Age: 58 Year
  Sex: Female
  Weight: 65.7 kg

DRUGS (4)
  1. EFFEXOR XR [Suspect]
     Active Substance: VENLAFAXINE HYDROCHLORIDE
     Indication: DEPRESSION
     Dosage: UNK
  2. VENLAFAXINE HCL [Suspect]
     Active Substance: VENLAFAXINE HYDROCHLORIDE
     Indication: DEPRESSION
     Dosage: UNK
     Route: 048
     Dates: start: 2011
  3. VESICARE [Concomitant]
     Active Substance: SOLIFENACIN SUCCINATE
     Indication: URINARY TRACT DISORDER
     Dosage: 10 MG, 1X/DAY
  4. TRAZODONE [Concomitant]
     Active Substance: TRAZODONE HYDROCHLORIDE
     Dosage: 100 MG, UNK

REACTIONS (5)
  - Drug ineffective [Unknown]
  - Drug intolerance [Unknown]
  - Personality change [Unknown]
  - Vulvovaginal pain [Unknown]
  - Pain [Unknown]

NARRATIVE: CASE EVENT DATE: 2011
